FAERS Safety Report 7121240-7 (Version None)
Quarter: 2010Q4

REPORT INFORMATION
  Report Type: 
  Country: None (occurrence: None)
  Receive Date: 20101124
  Receipt Date: 20101118
  Transmission Date: 20110411
  Serious: Yes (Life-Threatening, Other)
  Sender: FDA-Public Use
  Company Number: JP-ELI_LILLY_AND_COMPANY-JP201011004953

PATIENT
  Age: 62 Year
  Sex: Male

DRUGS (3)
  1. ALIMTA [Suspect]
     Indication: NON-SMALL CELL LUNG CANCER
     Dosage: 500 MG/M2, OTHER
     Route: 042
     Dates: start: 20101102, end: 20101102
  2. PANVITAN [Concomitant]
  3. FOLIAMIN [Concomitant]

REACTIONS (2)
  - HAEMOPTYSIS [None]
  - LUNG DISORDER [None]
